FAERS Safety Report 4981873-0 (Version None)
Quarter: 2006Q2

REPORT INFORMATION
  Report Type: 
  Country: None (occurrence: None)
  Receive Date: 20060425
  Receipt Date: 20050715
  Transmission Date: 20061013
  Serious: Yes (Other)
  Sender: FDA-Public Use
  Company Number: PHNU2005DE02559

PATIENT
  Sex: Female

DRUGS (4)
  1. GLIANIMON [Suspect]
     Indication: PSYCHOTIC DISORDER
     Dosage: 4 MG, QD
     Route: 065
     Dates: start: 20050501
  2. ZOLPIDEM TARTRATE [Suspect]
     Indication: SLEEP DISORDER
     Dosage: 1 DF, PRN
     Route: 065
     Dates: start: 20050501
  3. CLOZAPINE [Suspect]
     Indication: PSYCHOTIC DISORDER
     Dosage: UP TO 550 MG/DAY
     Route: 048
     Dates: start: 20050501, end: 20050601
  4. EUGLUCON [Concomitant]

REACTIONS (10)
  - BLOOD CREATINE PHOSPHOKINASE INCREASED [None]
  - C-REACTIVE PROTEIN INCREASED [None]
  - DIFFICULTY IN WALKING [None]
  - DRUG LEVEL INCREASED [None]
  - DYSPHAGIA [None]
  - MUSCLE CONTRACTIONS INVOLUNTARY [None]
  - MYALGIA [None]
  - POLYMYALGIA [None]
  - PYREXIA [None]
  - RED BLOOD CELL SEDIMENTATION RATE INCREASED [None]
